FAERS Safety Report 5725159-5 (Version None)
Quarter: 2008Q2

REPORT INFORMATION
  Report Type: 
  Country: None (occurrence: None)
  Receive Date: 20080501
  Receipt Date: 20080418
  Transmission Date: 20081010
  Serious: Yes (Hospitalization, Congenital Anomaly)
  Sender: FDA-Public Use
  Company Number: A0681909A

PATIENT
  Sex: Female
  Weight: 4.5 kg

DRUGS (11)
  1. PAXIL [Suspect]
     Indication: DEPRESSION
     Dates: start: 20020301, end: 20050801
  2. VITAMIN TAB [Concomitant]
  3. TYLENOL [Concomitant]
  4. PENICILLIN [Concomitant]
  5. PAROXETINE HCL [Concomitant]
     Indication: DEPRESSION
  6. MACROBID [Concomitant]
     Dates: start: 20030205
  7. RANITIDINE [Concomitant]
  8. NUBAIN [Concomitant]
     Dates: start: 20030401
  9. ZOFRAN [Concomitant]
     Dates: start: 20030401
  10. PROTONIX [Concomitant]
     Dates: start: 20030401
  11. PHENERGAN [Concomitant]
     Dates: start: 20030401

REACTIONS (13)
  - ATRIAL SEPTAL DEFECT [None]
  - CARDIAC FAILURE [None]
  - CARDIAC MURMUR [None]
  - CARDIOMEGALY [None]
  - DRUG EXPOSURE DURING PREGNANCY [None]
  - ELECTROCARDIOGRAM QRS COMPLEX PROLONGED [None]
  - FLUID OVERLOAD [None]
  - RIGHT VENTRICULAR HYPERTROPHY [None]
  - SINUS TACHYCARDIA [None]
  - TACHYPNOEA [None]
  - TRICUSPID VALVE INCOMPETENCE [None]
  - VENTRICULAR SEPTAL DEFECT [None]
  - WEIGHT GAIN POOR [None]
